FAERS Safety Report 5627395-5 (Version None)
Quarter: 2008Q1

REPORT INFORMATION
  Report Type: 
  Country: None (occurrence: None)
  Receive Date: 20080214
  Receipt Date: 20080214
  Transmission Date: 20080703
  Serious: No
  Sender: FDA-Public Use
  Company Number: None

PATIENT
  Age: 39 Year
  Sex: Female
  Weight: 76.2043 kg

DRUGS (2)
  1. EFFEXOR [Suspect]
     Indication: ANXIETY
     Dosage: 150MG ONCE DAILY
     Dates: start: 20050606, end: 20080131
  2. EFFEXOR [Suspect]
     Indication: DEPRESSION
     Dosage: 150MG ONCE DAILY
     Dates: start: 20050606, end: 20080131

REACTIONS (22)
  - ABNORMAL DREAMS [None]
  - ANGER [None]
  - ANHEDONIA [None]
  - ANTISOCIAL BEHAVIOUR [None]
  - CONFUSIONAL STATE [None]
  - CRYING [None]
  - DRUG DEPENDENCE [None]
  - FEELING ABNORMAL [None]
  - FORMICATION [None]
  - HEADACHE [None]
  - HYPERHIDROSIS [None]
  - HYPERSOMNIA [None]
  - IMPAIRED DRIVING ABILITY [None]
  - INFLUENZA LIKE ILLNESS [None]
  - MALAISE [None]
  - MUSCULOSKELETAL STIFFNESS [None]
  - MYALGIA [None]
  - NERVOUS SYSTEM DISORDER [None]
  - RASH [None]
  - SWELLING FACE [None]
  - TREMOR [None]
  - WEIGHT INCREASED [None]
